FAERS Safety Report 5522255-2 (Version None)
Quarter: 2007Q4

REPORT INFORMATION
  Report Type: 
  Country: None (occurrence: None)
  Receive Date: 20071120
  Receipt Date: 20071113
  Transmission Date: 20080405
  Serious: Yes (Other)
  Sender: FDA-Public Use
  Company Number: PHNR2007AU00561

PATIENT
  Age: 34 Year
  Sex: Male

DRUGS (5)
  1. CLOZARIL [Suspect]
     Indication: SCHIZOPHRENIA
     Dosage: 200 MG - 350 MG DAILY
     Route: 048
     Dates: start: 19981026, end: 20070301
  2. CLOZARIL [Suspect]
     Dosage: UNK, UNK
     Route: 048
     Dates: start: 20070302, end: 20071005
  3. INTERFERON [Concomitant]
     Indication: HEPATITIS C
     Dosage: 180 UG, QW
     Route: 030
     Dates: start: 20060929, end: 20070801
  4. RIBAVIRIN [Concomitant]
     Indication: HEPATITIS C
     Dosage: 600 MG, BID
     Dates: start: 20060928
  5. RISPERIDONE [Concomitant]
     Dates: start: 20071001

REACTIONS (3)
  - HEPATITIS C [None]
  - LEUKOPENIA [None]
  - NEUTROPENIA [None]
